FAERS Safety Report 23972721 (Version 1)
Quarter: 2024Q2

REPORT INFORMATION
  Report Type: Spontaneous
  Country: US (occurrence: None)
  Receive Date: 20240613
  Receipt Date: 20240613
  Transmission Date: 20240715
  Serious: Yes (Hospitalization)
  Sender: FDA-Public Use
  Company Number: None

PATIENT
  Age: 71 Year
  Sex: Male

DRUGS (8)
  1. GAMMAGARD LIQUID [Suspect]
     Active Substance: HUMAN IMMUNOGLOBULIN G
     Indication: Myasthenia gravis
     Dosage: FREQUENCY : EVERY OTHER WEEK;?
     Route: 042
     Dates: start: 20221207
  2. GAMMAGARD LIQUID [Suspect]
     Active Substance: HUMAN IMMUNOGLOBULIN G
     Indication: Myasthenia gravis
     Dates: start: 20221207
  3. SODIUM CHLOR (100ML/BAG) [Concomitant]
  4. BACTERIOSTATIC WATER MDV [Concomitant]
  5. METHYLPRED SOD SUCC SDV [Concomitant]
  6. SODIUM CHLOR (50ML/BAG) [Concomitant]
  7. DIPHENHYDRAMINE [Concomitant]
     Active Substance: DIPHENHYDRAMINE
  8. HEPARINL/L FLUSH SYRINGE [Concomitant]

REACTIONS (2)
  - Pneumonia [None]
  - Intentional dose omission [None]

NARRATIVE: CASE EVENT DATE: 20240612
